FAERS Safety Report 19068959 (Version 1)
Quarter: 2021Q1

REPORT INFORMATION
  Report Type: Spontaneous
  Country: US (occurrence: US)
  Receive Date: 20210329
  Receipt Date: 20210329
  Transmission Date: 20210420
  Serious: Yes (Other)
  Sender: FDA-Public Use
  Company Number: US-MYLANLABS-2021M1016487

PATIENT
  Sex: Female

DRUGS (1)
  1. IBANDRONATE MYLAN [Suspect]
     Active Substance: IBANDRONIC ACID
     Indication: OSTEOPENIA
     Dosage: UNK

REACTIONS (1)
  - Femur fracture [Recovering/Resolving]

NARRATIVE: CASE EVENT DATE: 2019
